FAERS Safety Report 22231508 (Version 4)
Quarter: 2024Q1

REPORT INFORMATION
  Report Type: Spontaneous
  Country: US (occurrence: None)
  Receive Date: 20230420
  Receipt Date: 20240104
  Transmission Date: 20240410
  Serious: Yes (Hospitalization, Other)
  Sender: FDA-Public Use
  Company Number: US-ROCHE-3314998

PATIENT
  Age: 35 Year
  Sex: Male
  Weight: 77.18 kg

DRUGS (10)
  1. AVASTIN [Suspect]
     Active Substance: BEVACIZUMAB
     Indication: Sarcoma
     Route: 065
     Dates: end: 201605
  2. NEURONTIN [Concomitant]
     Active Substance: GABAPENTIN
     Indication: Neuralgia
     Route: 048
  3. MOTRIN [Concomitant]
     Active Substance: IBUPROFEN
     Route: 048
  4. KEPPRA [Concomitant]
     Active Substance: LEVETIRACETAM
     Route: 048
  5. ESKALITH [Concomitant]
     Active Substance: LITHIUM CARBONATE
     Route: 048
  6. SEROQUEL [Concomitant]
     Active Substance: QUETIAPINE FUMARATE
     Indication: Anxiety
     Dosage: BEDTIME
     Route: 048
  7. ZONEGRAN [Concomitant]
     Active Substance: ZONISAMIDE
     Route: 048
  8. STELARA [Concomitant]
     Active Substance: USTEKINUMAB
  9. BETAMETHASONE [Concomitant]
     Active Substance: BETAMETHASONE\BETAMETHASONE DIPROPIONATE
  10. TACROLIMUS [Concomitant]
     Active Substance: TACROLIMUS

REACTIONS (24)
  - Apathy [Unknown]
  - Cerebral thrombosis [Unknown]
  - Brain injury [Unknown]
  - Visual field defect [Unknown]
  - Depression [Not Recovered/Not Resolved]
  - Necrosis [Unknown]
  - Craniocerebral injury [Unknown]
  - Brain neoplasm malignant [Unknown]
  - Visual impairment [Unknown]
  - Psoriasis [Not Recovered/Not Resolved]
  - Balance disorder [Unknown]
  - Nail disorder [Unknown]
  - Muscular weakness [Unknown]
  - Fall [Unknown]
  - Urticaria [Unknown]
  - Headache [Not Recovered/Not Resolved]
  - Myoclonus [Not Recovered/Not Resolved]
  - Asthenia [Unknown]
  - Pain [Unknown]
  - Dysarthria [Unknown]
  - Amnesia [Unknown]
  - Mood swings [Unknown]
  - Muscle twitching [Unknown]
  - Rash [Unknown]
